FAERS Safety Report 18082104 (Version 1)
Quarter: 2020Q3

REPORT INFORMATION
  Report Type: Spontaneous
  Country: US (occurrence: US)
  Receive Date: 20200729
  Receipt Date: 20200729
  Transmission Date: 20201103
  Serious: Yes (Other)
  Sender: FDA-Public Use
  Company Number: US-ABBVIE-20K-163-3499622-00

PATIENT
  Sex: Female

DRUGS (2)
  1. ENBREL [Concomitant]
     Active Substance: ETANERCEPT
     Indication: PRODUCT USED FOR UNKNOWN INDICATION
  2. HUMIRA [Suspect]
     Active Substance: ADALIMUMAB
     Indication: ANKYLOSING SPONDYLITIS
     Route: 058

REACTIONS (14)
  - Feeling abnormal [Unknown]
  - Drug hypersensitivity [Unknown]
  - Fatigue [Unknown]
  - Pain [Unknown]
  - Fibromyalgia [Unknown]
  - Urticaria [Unknown]
  - Autoimmune disorder [Unknown]
  - Immunodeficiency [Unknown]
  - Unevaluable event [Unknown]
  - Poisoning [Unknown]
  - Spondylolisthesis [Unknown]
  - General symptom [Unknown]
  - Illness [Unknown]
  - Drug ineffective [Unknown]
